FAERS Safety Report 18717765 (Version 1)
Quarter: 2021Q1

REPORT INFORMATION
  Report Type: Spontaneous
  Country: US (occurrence: US)
  Receive Date: 20210108
  Receipt Date: 20210108
  Transmission Date: 20210419
  Serious: Yes (Other)
  Sender: FDA-Public Use
  Company Number: US-PURDUE-USA-2021-0195515

PATIENT
  Sex: Male

DRUGS (1)
  1. COLACE [Suspect]
     Active Substance: DOCUSATE SODIUM
     Indication: CONSTIPATION
     Dosage: 1?2 CAPSL, DAILY
     Route: 048

REACTIONS (5)
  - Discomfort [Recovered/Resolved]
  - Foreign body in throat [Recovered/Resolved]
  - Oropharyngeal pain [Unknown]
  - Cough [Unknown]
  - Product solubility abnormal [Recovered/Resolved]
